FAERS Safety Report 5743192-4 (Version None)
Quarter: 2008Q2

REPORT INFORMATION
  Report Type: 
  Country: None (occurrence: None)
  Receive Date: 20080519
  Receipt Date: 20080424
  Transmission Date: 20081010
  Serious: No
  Sender: FDA-Public Use
  Company Number: US-BOEHRINGER INGELHEIM GMBH, GERMANY-2008-BP-04712BP

PATIENT
  Sex: Male

DRUGS (9)
  1. SPIRIVA [Suspect]
     Indication: ASTHMA
     Route: 055
  2. FISH OIL CAPSULE [Concomitant]
  3. VITAMIN CAP [Concomitant]
  4. GINGER [Concomitant]
  5. FEXOFENADINE [Concomitant]
  6. AVANDIA [Concomitant]
  7. LISINOPRIL [Concomitant]
  8. GLIPIZIDE [Concomitant]
  9. ALBUTEROL [Concomitant]

REACTIONS (1)
  - DRUG INEFFECTIVE [None]
